FAERS Safety Report 10664482 (Version 1)
Quarter: 2014Q4

REPORT INFORMATION
  Report Type: Spontaneous
  Country: US (occurrence: US)
  Receive Date: 20141219
  Receipt Date: 20141219
  Transmission Date: 20150529
  Serious: No
  Sender: FDA-Public Use
  Company Number: US-BAUSCH-BL-2014-009676

PATIENT
  Age: 76 Year
  Sex: Female
  Weight: 58.57 kg

DRUGS (1)
  1. JUBLIA [Suspect]
     Active Substance: EFINACONAZOLE
     Indication: NAIL INFECTION
     Dosage: ONE DROP DAILY
     Route: 061
     Dates: start: 201411, end: 20141125

REACTIONS (1)
  - Nail discolouration [Not Recovered/Not Resolved]

NARRATIVE: CASE EVENT DATE: 201411
